FAERS Safety Report 25073760 (Version 2)
Quarter: 2025Q2

REPORT INFORMATION
  Report Type: Spontaneous
  Country: CA (occurrence: CA)
  Receive Date: 20250313
  Receipt Date: 20250508
  Transmission Date: 20250717
  Serious: Yes (Other)
  Sender: CELLTRION
  Company Number: CA-CELLTRION INC.-2025CA003564

PATIENT

DRUGS (6)
  1. YUFLYMA [Suspect]
     Active Substance: ADALIMUMAB-AATY
     Indication: Colitis ulcerative
     Dosage: MAINTENANCE - 40 MG - EVERY 2 WEEKS
     Route: 058
     Dates: start: 20240222, end: 202504
  2. YUFLYMA [Suspect]
     Active Substance: ADALIMUMAB-AATY
     Indication: Crohn^s disease
     Dosage: 40 MG, EVERY WEEK
     Route: 058
  3. HUMIRA [Concomitant]
     Active Substance: ADALIMUMAB
     Indication: Product used for unknown indication
     Route: 065
  4. VITAMINS NOS [Concomitant]
     Active Substance: VITAMINS
     Indication: Product used for unknown indication
     Route: 065
  5. IMURAN [Concomitant]
     Active Substance: AZATHIOPRINE
  6. VIT D [VITAMIN D NOS] [Concomitant]

REACTIONS (6)
  - Haematochezia [Unknown]
  - Mucous stools [Unknown]
  - Frequent bowel movements [Unknown]
  - Condition aggravated [Unknown]
  - Abdominal pain [Unknown]
  - Drug ineffective [Unknown]
